FAERS Safety Report 18654631 (Version 1)
Quarter: 2020Q4

REPORT INFORMATION
  Report Type: Spontaneous
  Country: US (occurrence: US)
  Receive Date: 20201223
  Receipt Date: 20201223
  Transmission Date: 20210114
  Serious: No
  Sender: FDA-Public Use
  Company Number: US-GLAXOSMITHKLINE-US2020248069

PATIENT
  Age: 64 Year
  Sex: Female

DRUGS (6)
  1. EQUATE NICOTINE [Suspect]
     Active Substance: NICOTINE
  2. EQUATE NICOTINE [Suspect]
     Active Substance: NICOTINE
     Indication: SMOKING CESSATION THERAPY
     Dosage: UNK
  3. NICODERM CQ [Suspect]
     Active Substance: NICOTINE
     Indication: SMOKING CESSATION THERAPY
     Dosage: UNK
     Dates: start: 20201115, end: 20201120
  4. NICODERM CQ [Suspect]
     Active Substance: NICOTINE
     Indication: SMOKING CESSATION THERAPY
     Dosage: UNK
  5. NICODERM CQ [Suspect]
     Active Substance: NICOTINE
  6. EQUATE NICOTINE [Suspect]
     Active Substance: NICOTINE

REACTIONS (2)
  - Inappropriate schedule of product administration [Unknown]
  - Application site rash [Unknown]
